FAERS Safety Report 23809017 (Version 1)
Quarter: 2024Q2

REPORT INFORMATION
  Report Type: Spontaneous
  Country: FR (occurrence: FR)
  Receive Date: 20240502
  Receipt Date: 20240502
  Transmission Date: 20240715
  Serious: Yes (Hospitalization)
  Sender: FDA-Public Use
  Company Number: None

PATIENT
  Age: 68 Year
  Sex: Female
  Weight: 58 kg

DRUGS (13)
  1. AMIODARONE [Suspect]
     Active Substance: AMIODARONE
     Indication: Cardiac fibrillation
     Route: 048
     Dates: start: 20220530, end: 20220621
  2. ELIQUIS [Concomitant]
     Active Substance: APIXABAN
     Indication: Cardiac fibrillation
     Route: 048
     Dates: start: 20220509, end: 20220621
  3. TRANEXAMIC ACID [Concomitant]
     Active Substance: TRANEXAMIC ACID
     Indication: Haemorrhage
     Route: 042
     Dates: start: 20220626, end: 20220626
  4. KARDEGIC [Concomitant]
     Active Substance: ASPIRIN DL-LYSINE
     Indication: Cardiovascular event prophylaxis
     Route: 048
     Dates: start: 20220509, end: 20220623
  5. SUFENTANIL [Suspect]
     Active Substance: SUFENTANIL
     Indication: Sedation
     Route: 042
     Dates: start: 20220626, end: 20220630
  6. AMOXICILLIN [Concomitant]
     Active Substance: AMOXICILLIN
     Indication: Endocarditis
     Route: 042
     Dates: start: 20220509, end: 20220628
  7. FIBRINOGEN HUMAN [Concomitant]
     Active Substance: FIBRINOGEN HUMAN
     Indication: Haemostasis
     Dosage: HUMAN FIBRINOGEN ((MAMMAL/HUMAN/PLASMA))
     Route: 042
     Dates: start: 20220626, end: 20220626
  8. MIDAZOLAM [Suspect]
     Active Substance: MIDAZOLAM
     Indication: Sedation
     Route: 042
     Dates: start: 20220626, end: 20220628
  9. HYDROCORTISONE [Concomitant]
     Active Substance: HYDROCORTISONE
     Indication: Inflammation
     Dosage: HYDROCORTISONE ACEPONATE
     Route: 042
     Dates: start: 20220626, end: 20220627
  10. OCTREOTIDE ACETATE [Suspect]
     Active Substance: OCTREOTIDE ACETATE
     Indication: Pancreatic disorder
     Route: 042
     Dates: start: 20220627, end: 20220628
  11. OCTAPLEX [Concomitant]
     Active Substance: COAGULATION FACTOR IX HUMAN\COAGULATION FACTOR VII HUMAN\COAGULATION FACTOR X HUMAN\PROTEIN C\PROTEI
     Indication: Haemorrhage
     Route: 042
     Dates: start: 20220624, end: 20220625
  12. ATORVASTATIN [Concomitant]
     Active Substance: ATORVASTATIN
     Indication: Dyslipidaemia
     Route: 042
     Dates: start: 2022
  13. PANTOPRAZOLE [Concomitant]
     Active Substance: PANTOPRAZOLE
     Indication: Gastrooesophageal reflux disease
     Route: 042
     Dates: start: 2022

REACTIONS (1)
  - Bradycardia [Recovered/Resolved]

NARRATIVE: CASE EVENT DATE: 20220628
